FAERS Safety Report 5417292-2 (Version None)
Quarter: 2007Q3

REPORT INFORMATION
  Report Type: 
  Country: None (occurrence: None)
  Receive Date: 20070816
  Receipt Date: 20070809
  Transmission Date: 20080115
  Serious: Yes (Hospitalization)
  Sender: FDA-Public Use
  Company Number: US-SANOFI-SYNTHELABO-F03200700152

PATIENT
  Age: 855 Month
  Sex: Male

DRUGS (10)
  1. SIMVASTATIN [Concomitant]
     Dosage: UNK
     Route: 048
  2. EZETIMIBE [Concomitant]
     Dosage: UNK
     Route: 048
  3. VITAMIN B COMPLEX CAP [Concomitant]
     Dosage: UNK
     Route: 048
  4. POTASSIUM CHLORIDE [Concomitant]
     Dosage: UNK
     Route: 048
  5. HYDROCHLOROTHIAZIDE [Concomitant]
     Dosage: UNK
     Route: 048
  6. ASPIRIN [Concomitant]
     Dosage: UNK
     Route: 048
  7. ACTOS [Concomitant]
     Dosage: UNK
     Route: 048
  8. FLUOROURACIL [Suspect]
     Indication: COLON CANCER
     Dosage: 400 MG/M2 IV PUSH FOLLOWED BY 2,400 MG/M2 CIV OVER 24-48 HOURS, EVERY 2 WEEKS
     Route: 042
     Dates: start: 20070622, end: 20070622
  9. LEUCOVORIN CALCIUM [Suspect]
     Indication: COLON CANCER
     Route: 042
     Dates: start: 20070620, end: 20070620
  10. OXALIPLATIN [Suspect]
     Indication: COLON CANCER
     Route: 042
     Dates: start: 20070620, end: 20070620

REACTIONS (1)
  - CEREBRAL ISCHAEMIA [None]
